FAERS Safety Report 5296003-8 (Version None)
Quarter: 2007Q2

REPORT INFORMATION
  Report Type: 
  Country: None (occurrence: None)
  Receive Date: 20070406
  Receipt Date: 20070328
  Transmission Date: 20071010
  Serious: Yes (Death)
  Sender: FDA-Public Use
  Company Number: 239069

PATIENT

DRUGS (2)
  1. RITUXAN [Suspect]
     Indication: SYSTEMIC LUPUS ERYTHEMATOSUS
     Dosage: 1000 MG/BODY 2 TIMES, UNK
     Dates: start: 20050808, end: 20050816
  2. RITUXAN [Suspect]
     Indication: SYSTEMIC LUPUS ERYTHEMATOSUS
     Dosage: 1000 MG/BODY 2 TIMES, UNK
     Dates: start: 20060707, end: 20060719

REACTIONS (8)
  - C-REACTIVE PROTEIN INCREASED [None]
  - DEPRESSED LEVEL OF CONSCIOUSNESS [None]
  - DRUG EFFECT DECREASED [None]
  - HYPOXIA [None]
  - INFECTION [None]
  - PULMONARY EMBOLISM [None]
  - PYREXIA [None]
  - RENAL FAILURE ACUTE [None]
